FAERS Safety Report 24700405 (Version 1)
Quarter: 2024Q4

REPORT INFORMATION
  Report Type: Spontaneous
  Country: US (occurrence: US)
  Receive Date: 20241205
  Receipt Date: 20241205
  Transmission Date: 20250115
  Serious: No
  Sender: ELI LILLY AND COMPANY
  Company Number: US-ELI_LILLY_AND_COMPANY-US202412001931

PATIENT
  Age: 50 Year
  Sex: Female

DRUGS (1)
  1. TALTZ [Suspect]
     Active Substance: IXEKIZUMAB
     Indication: Psoriasis
     Dosage: 80 MG, UNKNOWN
     Route: 058
     Dates: start: 20241117

REACTIONS (6)
  - Injection site pruritus [Unknown]
  - Injection site rash [Unknown]
  - Injection site erythema [Unknown]
  - Injection site induration [Unknown]
  - Injection site warmth [Unknown]
  - Injection site pain [Unknown]

NARRATIVE: CASE EVENT DATE: 20241201
